FAERS Safety Report 11810379 (Version 1)
Quarter: 2015Q4

REPORT INFORMATION
  Report Type: Spontaneous
  Country: US (occurrence: None)
  Receive Date: 20151207
  Receipt Date: 20151207
  Transmission Date: 20160305
  Serious: No
  Sender: FDA-Public Use
  Company Number: None

PATIENT
  Age: 64 Year
  Sex: Male
  Weight: 124.74 kg

DRUGS (2)
  1. DAILY ADULT VITAMIN [Concomitant]
  2. INVOKANA [Suspect]
     Active Substance: CANAGLIFLOZIN
     Indication: TYPE 2 DIABETES MELLITUS
     Route: 048
     Dates: start: 20150701, end: 20150731

REACTIONS (5)
  - Hair texture abnormal [None]
  - Dizziness [None]
  - Dehydration [None]
  - Weight decreased [None]
  - Renal impairment [None]

NARRATIVE: CASE EVENT DATE: 20150701
